FAERS Safety Report 15315783 (Version 1)
Quarter: 2018Q3

REPORT INFORMATION
  Report Type: Spontaneous
  Country: US (occurrence: US)
  Receive Date: 20180824
  Receipt Date: 20180824
  Transmission Date: 20181010
  Serious: No
  Sender: FDA-Public Use
  Company Number: US-BAYER-2018-158717

PATIENT
  Sex: Female
  Weight: 67.57 kg

DRUGS (7)
  1. LIPITOR [Concomitant]
     Active Substance: ATORVASTATIN CALCIUM
     Indication: PRODUCT USED FOR UNKNOWN INDICATION
     Dosage: UNK
  2. BUDESONIDE. [Concomitant]
     Active Substance: BUDESONIDE
     Indication: PRODUCT USED FOR UNKNOWN INDICATION
     Dosage: UNK
  3. GABAPENTIN. [Concomitant]
     Active Substance: GABAPENTIN
     Indication: NEURALGIA
     Dosage: UNK
  4. ALEVE [Suspect]
     Active Substance: NAPROXEN SODIUM
     Indication: PRODUCT USED FOR UNKNOWN INDICATION
     Dosage: UNK
  5. ADALIMUMAB [Suspect]
     Active Substance: ADALIMUMAB
     Indication: PSORIATIC ARTHROPATHY
     Dosage: 40 MG, UNK
     Route: 058
     Dates: start: 20170501
  6. ADALIMUMAB [Suspect]
     Active Substance: ADALIMUMAB
     Indication: PSORIATIC ARTHROPATHY
     Dosage: 40 MG, UNK
     Route: 058
     Dates: start: 201604, end: 20160426
  7. FOLIC ACID. [Concomitant]
     Active Substance: FOLIC ACID
     Indication: PRODUCT USED FOR UNKNOWN INDICATION
     Dosage: UNK

REACTIONS (22)
  - Rotator cuff syndrome [Recovering/Resolving]
  - Muscle spasms [Unknown]
  - Pruritus allergic [Unknown]
  - Spinal disorder [Not Recovered/Not Resolved]
  - Injection site erythema [Recovered/Resolved]
  - Gait disturbance [Unknown]
  - Pruritus generalised [None]
  - Injection site pain [Recovered/Resolved]
  - Asthenia [Unknown]
  - Viral infection [Unknown]
  - Therapeutic response shortened [Unknown]
  - Alopecia [Unknown]
  - Nausea [Unknown]
  - Malaise [Unknown]
  - Back disorder [Recovering/Resolving]
  - Gastrointestinal disorder [Recovering/Resolving]
  - Eye pruritus [Recovering/Resolving]
  - Diarrhoea [Unknown]
  - Pyrexia [None]
  - Back pain [Unknown]
  - Osteoarthritis [Not Recovered/Not Resolved]
  - Arthralgia [Unknown]

NARRATIVE: CASE EVENT DATE: 2016
